FAERS Safety Report 21329502 (Version 1)
Quarter: 2022Q3

REPORT INFORMATION
  Report Type: Spontaneous
  Country: US (occurrence: None)
  Receive Date: 20220913
  Receipt Date: 20220913
  Transmission Date: 20221027
  Serious: No
  Sender: FDA-Public Use
  Company Number: None

PATIENT
  Sex: Female

DRUGS (1)
  1. MAKENA [Suspect]
     Active Substance: HYDROXYPROGESTERONE CAPROATE
     Indication: Prenatal care
     Dosage: 275MG WEEKLY SUB-Q
     Route: 058
     Dates: start: 20220711

REACTIONS (3)
  - Injection site pain [None]
  - Mental disorder [None]
  - Feeling abnormal [None]
